FAERS Safety Report 16167879 (Version 7)
Quarter: 2020Q2

REPORT INFORMATION
  Report Type: Spontaneous
  Country: GB (occurrence: GB)
  Receive Date: 20190408
  Receipt Date: 20200630
  Transmission Date: 20200713
  Serious: Yes (Life-Threatening, Hospitalization, Disabling, Other)
  Sender: FDA-Public Use
  Company Number: GB-AUROBINDO-AUR-APL-2019-018517

PATIENT
  Age: 86 Year
  Sex: Male

DRUGS (23)
  1. NOREPINEPHRINE. [Concomitant]
     Active Substance: NOREPINEPHRINE
     Indication: VASOCONSTRICTION
     Dosage: UNK
     Route: 065
  2. ADRENALINE [Concomitant]
     Active Substance: EPINEPHRINE
     Indication: VASOCONSTRICTION
     Dosage: UNK
     Route: 065
  3. MIRTAZAPINE. [Concomitant]
     Active Substance: MIRTAZAPINE
     Indication: STAPHYLOCOCCAL BACTERAEMIA
     Dosage: UNK
     Route: 065
  4. PYRIDOXINE [Concomitant]
     Active Substance: PYRIDOXINE
     Indication: PRODUCT USED FOR UNKNOWN INDICATION
     Dosage: UNK, VITAMIN B6
     Route: 065
  5. VITAMIN B6 [Concomitant]
     Active Substance: PYRIDOXINE HYDROCHLORIDE
     Indication: PRODUCT USED FOR UNKNOWN INDICATION
     Dosage: UNK
     Route: 065
  6. METFORMIN [Concomitant]
     Active Substance: METFORMIN HYDROCHLORIDE
     Indication: STAPHYLOCOCCAL BACTERAEMIA
     Dosage: UNK
     Route: 065
  7. VITAMIN D [Concomitant]
     Active Substance: VITAMIN D NOS
     Indication: VITAMIN SUPPLEMENTATION
     Dosage: UNK
     Route: 065
  8. PARACETAMOL [Suspect]
     Active Substance: ACETAMINOPHEN
     Indication: SEPSIS
     Dosage: 4 GRAM, DAILY
     Route: 048
  9. METFORMIN [Concomitant]
     Active Substance: METFORMIN HYDROCHLORIDE
     Indication: TYPE 2 DIABETES MELLITUS
  10. RAMIPRIL. [Concomitant]
     Active Substance: RAMIPRIL
     Indication: STAPHYLOCOCCAL BACTERAEMIA
     Dosage: UNK
     Route: 065
  11. VASOPRESSIN. [Concomitant]
     Active Substance: VASOPRESSIN
     Indication: VASOCONSTRICTION
     Dosage: UNK
     Route: 065
  12. CEFTRIAXONE. [Concomitant]
     Active Substance: CEFTRIAXONE
     Indication: BACTERIAL SEPSIS
     Dosage: 2 GRAM, ONCE A DAY
     Route: 065
  13. GENTAMICIN. [Concomitant]
     Active Substance: GENTAMICIN
     Indication: BACTERIAL SEPSIS
     Dosage: 5 MILLIGRAM/KILOGRAM IN TOTAL
     Route: 065
  14. INSULIN [Concomitant]
     Active Substance: INSULIN NOS
     Indication: TYPE 2 DIABETES MELLITUS
     Dosage: UNK, FIXED-RATE INSULIN INFUSION
     Route: 065
  15. MEROPENEM. [Concomitant]
     Active Substance: MEROPENEM
     Indication: SEPTIC SHOCK
     Dosage: 1 GRAM, 3 TIMES A DAY
     Route: 065
  16. THIAMINE. [Concomitant]
     Active Substance: THIAMINE
     Indication: PRODUCT USED FOR UNKNOWN INDICATION
     Dosage: UNK
     Route: 065
  17. SODIUM HYDROGEN CARBONATE [Concomitant]
     Active Substance: SODIUM BICARBONATE
     Indication: PRODUCT USED FOR UNKNOWN INDICATION
     Dosage: UNK
     Route: 065
  18. CALCIUM CARBONATE. [Concomitant]
     Active Substance: CALCIUM CARBONATE
     Indication: PRODUCT USED FOR UNKNOWN INDICATION
     Dosage: UNK
     Route: 065
  19. HEPARIN [Concomitant]
     Active Substance: HEPARIN SODIUM
     Indication: PROPHYLAXIS
     Dosage: UNK, (LOW MOLECULAR WEIGHT HEPARIN)
     Route: 065
  20. FLUCLOXACILLIN [Interacting]
     Active Substance: FLUCLOXACILLIN
     Indication: STAPHYLOCOCCAL BACTERAEMIA
     Dosage: 12 GRAM, DAILY, FOR 2 WEEKS
     Route: 042
  21. FLUCLOXACILLIN [Interacting]
     Active Substance: FLUCLOXACILLIN
     Indication: STAPHYLOCOCCAL SEPSIS
  22. INSULIN [Concomitant]
     Active Substance: INSULIN NOS
     Dosage: UNK, BIPHASIC INSULIN
     Route: 042
  23. SITAGLIPTIN [Concomitant]
     Active Substance: SITAGLIPTIN
     Indication: STAPHYLOCOCCAL BACTERAEMIA
     Dosage: UNK
     Route: 065

REACTIONS (24)
  - Leukocytosis [Unknown]
  - Depressed level of consciousness [Recovering/Resolving]
  - Anion gap increased [Recovered/Resolved]
  - Hyponatraemia [Unknown]
  - Pyrexia [Unknown]
  - Urinary retention [Unknown]
  - Drug interaction [Recovering/Resolving]
  - Metabolic acidosis [Recovered/Resolved]
  - Hyperglycaemia [Unknown]
  - C-reactive protein increased [Unknown]
  - Normocytic anaemia [Unknown]
  - Pollakiuria [Unknown]
  - Condition aggravated [Unknown]
  - Respiratory failure [Recovered/Resolved]
  - Wheezing [Unknown]
  - Delirium [Unknown]
  - Acute kidney injury [Unknown]
  - Blood osmolarity increased [Unknown]
  - Respiratory rate increased [Unknown]
  - Hypotension [Unknown]
  - Septic shock [Unknown]
  - Neutrophilia [Unknown]
  - Crepitations [Unknown]
  - Confusional state [Unknown]
